FAERS Safety Report 17436173 (Version 1)
Quarter: 2020Q1

REPORT INFORMATION
  Report Type: Spontaneous
  Country: CH (occurrence: CH)
  Receive Date: 20200219
  Receipt Date: 20200219
  Transmission Date: 20200409
  Serious: Yes (Hospitalization)
  Sender: FDA-Public Use
  Company Number: CH-JNJFOC-20200213367

PATIENT
  Age: 31 Year
  Sex: Male

DRUGS (3)
  1. RISPERDAL CONSTA [Suspect]
     Active Substance: RISPERIDONE
     Indication: PRODUCT USED FOR UNKNOWN INDICATION
     Dosage: IN TOTAL
     Route: 030
     Dates: start: 20191206, end: 20200106
  2. ESCITALOPRAM [Suspect]
     Active Substance: ESCITALOPRAM OXALATE
     Indication: PRODUCT USED FOR UNKNOWN INDICATION
     Route: 048
     Dates: start: 201912, end: 20200108
  3. RISPERDAL CONSTA [Suspect]
     Active Substance: RISPERIDONE
     Dosage: IN TOTAL
     Route: 030
     Dates: start: 20191217, end: 20191217

REACTIONS (7)
  - Dry mouth [Recovered/Resolved]
  - Prescribed overdose [Recovering/Resolving]
  - Myalgia [Recovered/Resolved]
  - Eyelid ptosis [Not Recovered/Not Resolved]
  - Agitation [Recovered/Resolved]
  - Tachycardia [Recovered/Resolved]
  - Medication error [Recovered/Resolved]

NARRATIVE: CASE EVENT DATE: 20191206
